FAERS Safety Report 6248035-0 (Version None)
Quarter: 2009Q2

REPORT INFORMATION
  Report Type: 
  Country: None (occurrence: None)
  Receive Date: 20090626
  Receipt Date: 20090518
  Transmission Date: 20091009
  Serious: Yes (Other)
  Sender: FDA-Public Use
  Company Number: KP-GENENTECH-283778

PATIENT

DRUGS (1)
  1. AVASTIN [Suspect]
     Indication: COLORECTAL CANCER METASTATIC
     Dosage: 5 MG/KG, UNK
     Route: 042

REACTIONS (9)
  - ANAEMIA [None]
  - DISEASE PROGRESSION [None]
  - FATIGUE [None]
  - FEBRILE NEUTROPENIA [None]
  - HYPERTENSION [None]
  - MUCOSAL INFLAMMATION [None]
  - NEUROPATHY PERIPHERAL [None]
  - NEUTROPENIA [None]
  - VOMITING [None]
